FAERS Safety Report 6381123-7 (Version None)
Quarter: 2009Q3

REPORT INFORMATION
  Report Type: 
  Country: None (occurrence: None)
  Receive Date: 20090925
  Receipt Date: 20090925
  Transmission Date: 20100115
  Serious: Yes (Hospitalization, Other)
  Sender: FDA-Public Use
  Company Number: None

PATIENT
  Age: 39 Year
  Sex: Female
  Weight: 58.9676 kg

DRUGS (1)
  1. MIRENA [Suspect]
     Indication: CONTRACEPTION
     Dosage: LEVONORGESTREL 20 MCG DAILY INTRA-UTERINE
     Route: 015
     Dates: start: 20060816, end: 20090819

REACTIONS (10)
  - CRYING [None]
  - DEPRESSION [None]
  - DEVICE LEAKAGE [None]
  - DEVICE MALFUNCTION [None]
  - EMOTIONAL DISORDER [None]
  - FEAR [None]
  - FEELING ABNORMAL [None]
  - INCORRECT DOSE ADMINISTERED [None]
  - IRRITABILITY [None]
  - SUICIDAL IDEATION [None]
